FAERS Safety Report 21898804 (Version 1)
Quarter: 2023Q1

REPORT INFORMATION
  Report Type: Spontaneous
  Country: SE (occurrence: SE)
  Receive Date: 20230123
  Receipt Date: 20230123
  Transmission Date: 20230417
  Serious: Yes (Other)
  Sender: FDA-Public Use
  Company Number: None

PATIENT
  Age: 24 Year
  Sex: Female
  Weight: 56 kg

DRUGS (1)
  1. MIRENA [Suspect]
     Active Substance: LEVONORGESTREL
     Indication: Contraception
     Dosage: 20?G/DAY
     Route: 015
     Dates: start: 202001, end: 202101

REACTIONS (10)
  - Nausea [Recovered/Resolved with Sequelae]
  - Presyncope [Recovered/Resolved]
  - Headache [Recovered/Resolved]
  - Depression [Recovered/Resolved with Sequelae]
  - Loss of libido [Recovered/Resolved]
  - Chest pain [Recovered/Resolved with Sequelae]
  - Dysmenorrhoea [Recovered/Resolved]
  - Vomiting [Recovered/Resolved]
  - Uterine pain [Recovered/Resolved with Sequelae]
  - Weight increased [Recovered/Resolved]

NARRATIVE: CASE EVENT DATE: 20200101
